FAERS Safety Report 8966761 (Version 1)
Quarter: 2012Q4

REPORT INFORMATION
  Report Type: 
  Country: DE (occurrence: DE)
  Receive Date: 20121214
  Receipt Date: 20121214
  Transmission Date: 20130627
  Serious: Yes (Other)
  Sender: FDA-Public Use
  Company Number: DE-MERCK-1212DEU004931

PATIENT
  Age: 68 Year
  Sex: Female
  Weight: 64 kg

DRUGS (3)
  1. JANUMET [Suspect]
     Indication: TYPE 2 DIABETES MELLITUS
     Dosage: 50mg/850mg, bid
     Route: 048
     Dates: start: 20110609, end: 20120705
  2. METFORMIN [Concomitant]
     Dosage: 1000 mg, bid
     Route: 048
     Dates: end: 20110609
  3. GLIBENCLAMID [Concomitant]
     Dosage: 3.5 mg, bid
     Route: 048
     Dates: end: 20110609

REACTIONS (1)
  - Pancreatic carcinoma [Not Recovered/Not Resolved]
